FAERS Safety Report 7272995-2 (Version None)
Quarter: 2011Q1

REPORT INFORMATION
  Report Type: 
  Country: None (occurrence: None)
  Receive Date: 20110203
  Receipt Date: 20110126
  Transmission Date: 20110831
  Serious: Yes (Congenital Anomaly)
  Sender: FDA-Public Use
  Company Number: A0911461A

PATIENT
  Sex: Male
  Weight: 2.2 kg

DRUGS (1)
  1. PAXIL [Suspect]

REACTIONS (3)
  - CONGENITAL AORTIC STENOSIS [None]
  - CARDIAC MURMUR [None]
  - DRUG EXPOSURE DURING PREGNANCY [None]
